FAERS Safety Report 23263367 (Version 1)
Quarter: 2023Q4

REPORT INFORMATION
  Report Type: Spontaneous
  Country: CN (occurrence: None)
  Receive Date: 20231205
  Receipt Date: 20231205
  Transmission Date: 20240110
  Serious: Yes (Hospitalization)
  Sender: FDA-Public Use
  Company Number: 2023A273162

PATIENT
  Age: 71 Year
  Sex: Female
  Weight: 69 kg

DRUGS (6)
  1. BUDESONIDE\FORMOTEROL FUMARATE [Suspect]
     Active Substance: BUDESONIDE\FORMOTEROL FUMARATE
     Dosage: 80 UG: 4.5 UG, 2 INHALATIONS TWO TIMES A DAY
     Route: 055
     Dates: start: 202108
  2. BUDESONIDE\FORMOTEROL FUMARATE [Suspect]
     Active Substance: BUDESONIDE\FORMOTEROL FUMARATE
     Dosage: 80 UG: 4.5 UG, 2 INHALATIONS TWO TIMES A DAY
     Route: 055
     Dates: start: 20220428
  3. ALBUTEROL SULFATE [Concomitant]
     Active Substance: ALBUTEROL SULFATE
     Indication: Asthma
     Dosage: AS REQUIRED
     Route: 055
     Dates: start: 202108
  4. SODIUM CROMOGLICATE, NAPHAZOLINE HYDROCHLORIDE AND CHLORPHENAMINE M... [Concomitant]
     Indication: Rhinitis allergic
     Route: 045
  5. BUDESONIDE [Concomitant]
     Active Substance: BUDESONIDE
     Indication: Rhinitis allergic
     Route: 045
  6. MONTELUKAST SODIUM [Concomitant]
     Active Substance: MONTELUKAST SODIUM
     Indication: Asthma
     Route: 048
     Dates: start: 202108

REACTIONS (2)
  - Dyspnoea [Recovering/Resolving]
  - Allergic reaction to excipient [Unknown]
